FAERS Safety Report 12980910 (Version 1)
Quarter: 2016Q4

REPORT INFORMATION
  Report Type: Report from Study
  Country: US (occurrence: US)
  Receive Date: 20161128
  Receipt Date: 20161128
  Transmission Date: 20170207
  Serious: Yes (Other)
  Sender: FDA-Public Use
  Company Number: US-BRISTOL-MYERS SQUIBB COMPANY-BMS-2016-097603

PATIENT
  Age: 54 Year
  Sex: Female
  Weight: 84.5 kg

DRUGS (1)
  1. ABATACEPT [Suspect]
     Active Substance: ABATACEPT
     Indication: RHEUMATOID ARTHRITIS
     Dosage: UNK
     Route: 058

REACTIONS (7)
  - Bone disorder [Unknown]
  - Spinal operation [Unknown]
  - Sinusitis [Unknown]
  - Myocardial infarction [Unknown]
  - Arthralgia [Unknown]
  - Stress [Unknown]
  - Stent placement [Unknown]

NARRATIVE: CASE EVENT DATE: 20161020
